FAERS Safety Report 15974778 (Version 1)
Quarter: 2019Q1

REPORT INFORMATION
  Report Type: Other
  Country: DE (occurrence: DE)
  Receive Date: 20190218
  Receipt Date: 20190218
  Transmission Date: 20190418
  Serious: Yes (Hospitalization, Other)
  Sender: FDA-Public Use
  Company Number: DE-MACLEODS PHARMACEUTICALS US LTD-MAC2019020112

PATIENT

DRUGS (4)
  1. SILDENAFIL. [Suspect]
     Active Substance: SILDENAFIL
     Indication: PULMONARY ARTERIAL HYPERTENSION
     Dosage: UNK,ROUTE : 65
     Route: 065
     Dates: start: 2006
  2. TACROLIMUS. [Suspect]
     Active Substance: TACROLIMUS
     Indication: PULMONARY ARTERIAL HYPERTENSION
     Dosage: UNK,AIMING FOR A GOAL TROUGH BLOOD LEVEL OF 1.5-2.5 NG/ML.
     Route: 065
     Dates: start: 201602
  3. VENTAVIS [Suspect]
     Active Substance: ILOPROST
     Indication: PULMONARY ARTERIAL HYPERTENSION
     Dosage: UNK,ROUTE 55
     Dates: start: 2013
  4. MACITENTAN [Suspect]
     Active Substance: MACITENTAN
     Indication: PULMONARY ARTERIAL HYPERTENSION
     Dosage: UNK,ROUTE:065
     Route: 048
     Dates: start: 2014

REACTIONS (8)
  - Cardiac index increased [Unknown]
  - Spontaneous intrahepatic portosystemic venous shunt [Unknown]
  - Pulmonary arterial hypertension [Unknown]
  - Disease progression [Unknown]
  - Gastrointestinal haemorrhage [Recovered/Resolved]
  - Transfusion [Unknown]
  - Epistaxis [Recovering/Resolving]
  - Off label use [Unknown]

NARRATIVE: CASE EVENT DATE: 2015
